FAERS Safety Report 12147972 (Version 3)
Quarter: 2016Q2

REPORT INFORMATION
  Report Type: Spontaneous
  Country: US (occurrence: US)
  Receive Date: 20160304
  Receipt Date: 20160412
  Transmission Date: 20160815
  Serious: Yes (Hospitalization)
  Sender: FDA-Public Use
  Company Number: US-BAYER-2016-042999

PATIENT
  Age: 37 Year
  Sex: Female
  Weight: 86.17 kg

DRUGS (9)
  1. DIFLUCAN [Concomitant]
     Active Substance: FLUCONAZOLE
     Indication: FUNGAL INFECTION
  2. IBUPROFEN. [Concomitant]
     Active Substance: IBUPROFEN
     Indication: ARTHRALGIA
     Dosage: 800 MG, UNK
     Dates: start: 20121218
  3. CELEBREX [Concomitant]
     Active Substance: CELECOXIB
     Indication: ARTHRALGIA
  4. REGLAN [Concomitant]
     Active Substance: METOCLOPRAMIDE HYDROCHLORIDE
  5. IMITREX [Concomitant]
     Active Substance: SUMATRIPTAN SUCCINATE
  6. OMEPRAZOLE. [Concomitant]
     Active Substance: OMEPRAZOLE
     Indication: DYSPEPSIA
  7. MIRENA [Suspect]
     Active Substance: LEVONORGESTREL
     Indication: CONTRACEPTION
     Dosage: 20 MCG/24HR, CONT
     Route: 015
     Dates: start: 20100402, end: 20130109
  8. NORETHINDRONE. [Concomitant]
     Active Substance: NORETHINDRONE
  9. MIRENA [Suspect]
     Active Substance: LEVONORGESTREL
     Indication: MENORRHAGIA

REACTIONS (10)
  - Pain [Not Recovered/Not Resolved]
  - Device issue [None]
  - Post procedural discomfort [None]
  - Embedded device [None]
  - Complication associated with device [None]
  - Abdominal pain lower [Not Recovered/Not Resolved]
  - Bacterial infection [None]
  - Depression [None]
  - Anxiety [None]
  - Stress [None]

NARRATIVE: CASE EVENT DATE: 201004
